FAERS Safety Report 5442188-X (Version None)
Quarter: 2007Q3

REPORT INFORMATION
  Report Type: 
  Country: None (occurrence: None)
  Receive Date: 20070904
  Receipt Date: 20070709
  Transmission Date: 20080115
  Serious: Yes (Other)
  Sender: FDA-Public Use
  Company Number: US-PURDUE-USA_2007_0028514

PATIENT
  Sex: Female

DRUGS (1)
  1. OXYCONTIN [Suspect]
     Indication: PAIN
     Dosage: UNK MG, QID
     Route: 048

REACTIONS (7)
  - DRUG DEPENDENCE [None]
  - FATIGUE [None]
  - GASTROINTESTINAL DISORDER [None]
  - KIDNEY INFECTION [None]
  - MALAISE [None]
  - RENAL DISORDER [None]
  - URTICARIA [None]
